FAERS Safety Report 9852429 (Version 1)
Quarter: 2014Q1

REPORT INFORMATION
  Report Type: Spontaneous
  Country: US (occurrence: US)
  Receive Date: 20140129
  Receipt Date: 20140129
  Transmission Date: 20141002
  Serious: No
  Sender: FDA-Public Use
  Company Number: US-BRACCO-009918

PATIENT
  Age: 41 Year
  Sex: Female

DRUGS (3)
  1. MULTIHANCE [Suspect]
     Indication: NUCLEAR MAGNETIC RESONANCE IMAGING
     Route: 048
     Dates: start: 20130828, end: 20130828
  2. FLUOXETINE [Concomitant]
  3. CLARITIN [Concomitant]

REACTIONS (2)
  - Accidental exposure to product [Unknown]
  - No adverse event [Unknown]
